FAERS Safety Report 10579386 (Version 2)
Quarter: 2014Q4

REPORT INFORMATION
  Report Type: Spontaneous
  Country: US (occurrence: US)
  Receive Date: 20141112
  Receipt Date: 20141215
  Transmission Date: 20150529
  Serious: Yes (Hospitalization, Other)
  Sender: FDA-Public Use
  Company Number: US-BAYER-2014-165629

PATIENT
  Age: 22 Year
  Sex: Female
  Weight: 106.58 kg

DRUGS (1)
  1. MIRENA [Suspect]
     Active Substance: LEVONORGESTREL
     Indication: CONTRACEPTION
     Dosage: 20 MCG/24HR, CONT
     Route: 015
     Dates: start: 20090428, end: 20130109

REACTIONS (10)
  - Gastrointestinal injury [None]
  - Injury [None]
  - Device issue [None]
  - Peritoneal haemorrhage [None]
  - Ovarian cyst ruptured [None]
  - Uterine perforation [None]
  - Abdominal pain lower [None]
  - Internal haemorrhage [None]
  - Emotional distress [None]
  - Pelvic pain [None]

NARRATIVE: CASE EVENT DATE: 201201
